FAERS Safety Report 4599771-3 (Version None)
Quarter: 2005Q1

REPORT INFORMATION
  Report Type: 
  Country: None (occurrence: None)
  Receive Date: 20050303
  Receipt Date: 20050222
  Transmission Date: 20050727
  Serious: Yes (Hospitalization)
  Sender: FDA-Public Use
  Company Number: 2005-BP-01083BP

PATIENT
  Age: 94 Year
  Sex: Female

DRUGS (5)
  1. FLOMAX [Suspect]
     Indication: MEDICATION ERROR
     Dosage: 0.4 MG (0.4 MG), PO
     Route: 048
  2. THYROID LEVOXYL (LEVOTHYROXINE SODIUM) [Concomitant]
  3. VALIUM [Concomitant]
  4. PERSANTINE [Concomitant]
  5. ASPIRIN [Concomitant]

REACTIONS (5)
  - CEREBROVASCULAR ACCIDENT [None]
  - DIZZINESS [None]
  - MEDICATION ERROR [None]
  - STOMACH DISCOMFORT [None]
  - VISUAL ACUITY REDUCED [None]
